FAERS Safety Report 7238052 (Version 2)
Quarter: 2014Q3

REPORT INFORMATION
  Report Type: Spontaneous
  Country: US (occurrence: None)
  Receive Date: 20091217
  Receipt Date: 20140915
  Transmission Date: 20150326
  Serious: Yes (Hospitalization, Other)
  Sender: FDA-Public Use
  Company Number: 2009S1008780

PATIENT
  Age: 83 Year
  Sex: Male
  Weight: 59 kg

DRUGS (7)
  1. ALLEGRA [Concomitant]
     Active Substance: FEXOFENADINE HYDROCHLORIDE
  2. ASPIRIN. [Concomitant]
     Active Substance: ASPIRIN
  3. LEVOTHYROXINE [Concomitant]
     Active Substance: LEVOTHYROXINE
  4. PHOSPHO-SODA [Suspect]
     Active Substance: SODIUM PHOSPHATE, DIBASIC\SODIUM PHOSPHATE, MONOBASIC
     Indication: COLONOSCOPY
     Dosage: PO
     Route: 048
     Dates: start: 20061102
  5. CENTRUM SILVER [Concomitant]
     Active Substance: VITAMINS
  6. LISINOPRIL. [Concomitant]
     Active Substance: LISINOPRIL
  7. LEXAPRO [Concomitant]
     Active Substance: ESCITALOPRAM OXALATE

REACTIONS (16)
  - Renal failure acute [None]
  - Cerebrovascular accident [None]
  - Mental status changes [None]
  - Anaemia [None]
  - Endocarditis [None]
  - Blood calcium decreased [None]
  - Atrial fibrillation [None]
  - Liver function test abnormal [None]
  - Staphylococcal infection [None]
  - Thrombocytopenia [None]
  - Hypertension [None]
  - Arrhythmia [None]
  - Bacteraemia [None]
  - Renal failure chronic [None]
  - Metabolic acidosis [None]
  - Encephalopathy [None]

NARRATIVE: CASE EVENT DATE: 20061103
